FAERS Safety Report 4305166-X (Version None)
Quarter: 2004Q1

REPORT INFORMATION
  Report Type: 
  Country: None (occurrence: None)
  Receive Date: 20040224
  Receipt Date: 20040224
  Transmission Date: 20041129
  Serious: No
  Sender: FDA-Public Use
  Company Number: None

PATIENT
  Age: 41 Year
  Sex: Male
  Weight: 89.8 kg

DRUGS (2)
  1. FENTANYL [Suspect]
  2. TRANSPARENT DRESSING 4IN X 4 3 [Suspect]

REACTIONS (2)
  - HYPERHIDROSIS [None]
  - SOMNOLENCE [None]
